FAERS Safety Report 10753497 (Version 2)
Quarter: 2015Q2

REPORT INFORMATION
  Report Type: Report from Study
  Country: VE (occurrence: VE)
  Receive Date: 20150131
  Receipt Date: 20150622
  Transmission Date: 20150821
  Serious: Yes (Death)
  Sender: FDA-Public Use
  Company Number: VE-ABBVIE-15K-178-1340805-00

PATIENT
  Sex: Male

DRUGS (1)
  1. ZEMPLAR [Suspect]
     Active Substance: PARICALCITOL
     Indication: RENAL FAILURE
     Dosage: 0.6 ML
     Route: 042
     Dates: start: 201303, end: 201410

REACTIONS (3)
  - Cardiac failure [Fatal]
  - Sepsis [Fatal]
  - Diabetic foot infection [Fatal]
